FAERS Safety Report 15225723 (Version 1)
Quarter: 2018Q3

REPORT INFORMATION
  Report Type: Spontaneous
  Country: US (occurrence: US)
  Receive Date: 20180801
  Receipt Date: 20180801
  Transmission Date: 20181010
  Serious: No
  Sender: FDA-Public Use
  Company Number: US-PFIZER INC-2018305336

PATIENT
  Age: 81 Year
  Sex: Female

DRUGS (2)
  1. ASPIRIN /00002701/ [Concomitant]
     Active Substance: ASPIRIN
  2. DOCETAXEL. [Suspect]
     Active Substance: DOCETAXEL
     Indication: BREAST CANCER
     Dosage: UNK, CYCLIC, WEEKLY (6 CYCLES)
     Dates: start: 20130703, end: 20131016

REACTIONS (5)
  - Hair colour changes [Unknown]
  - Madarosis [Unknown]
  - Alopecia [Recovering/Resolving]
  - Hair texture abnormal [Unknown]
  - Hair disorder [Unknown]
